FAERS Safety Report 14750792 (Version 1)
Quarter: 2018Q2

REPORT INFORMATION
  Report Type: Spontaneous
  Country: US (occurrence: US)
  Receive Date: 20180412
  Receipt Date: 20180412
  Transmission Date: 20180711
  Serious: No
  Sender: FDA-Public Use
  Company Number: US-PFIZER INC-2018148544

PATIENT
  Age: 56 Year
  Sex: Female
  Weight: 71.2 kg

DRUGS (1)
  1. SULFASALAZINE. [Suspect]
     Active Substance: SULFASALAZINE
     Dosage: 500 MG, 2X/DAY
     Route: 048
     Dates: start: 2011

REACTIONS (2)
  - Condition aggravated [Unknown]
  - Product use in unapproved indication [Unknown]

NARRATIVE: CASE EVENT DATE: 2011
